FAERS Safety Report 14727288 (Version 1)
Quarter: 2018Q2

REPORT INFORMATION
  Report Type: Spontaneous
  Country: US (occurrence: US)
  Receive Date: 20180406
  Receipt Date: 20180406
  Transmission Date: 20180711
  Serious: Yes (Other)
  Sender: FDA-Public Use
  Company Number: US-BAYER-2018-065162

PATIENT
  Sex: Male

DRUGS (3)
  1. IBUPROFEN. [Concomitant]
     Active Substance: IBUPROFEN
  2. ADVIL [Concomitant]
     Active Substance: IBUPROFEN
  3. ALEVE [Suspect]
     Active Substance: NAPROXEN SODIUM
     Dosage: UNK

REACTIONS (13)
  - Haematochezia [Unknown]
  - Gastric ulcer [Unknown]
  - Dyspnoea [Unknown]
  - Abdominal pain [Recovering/Resolving]
  - Malaise [Recovering/Resolving]
  - Pyrexia [None]
  - Faeces discoloured [Unknown]
  - Dehydration [Unknown]
  - Pain [Recovering/Resolving]
  - Dizziness [Unknown]
  - Diarrhoea [Unknown]
  - Night sweats [Unknown]
  - Gastric disorder [Unknown]
